FAERS Safety Report 14401368 (Version 4)
Quarter: 2018Q1

REPORT INFORMATION
  Report Type: Spontaneous
  Country: JP (occurrence: JP)
  Receive Date: 20180117
  Receipt Date: 20180326
  Transmission Date: 20180509
  Serious: Yes (Death)
  Sender: FDA-Public Use
  Company Number: PHJP2018JP001113

PATIENT
  Age: 40 Year
  Sex: Male

DRUGS (7)
  1. KENEI G [Concomitant]
     Active Substance: GLYCERIN
     Indication: CONSTIPATION
     Dosage: 120 ML, QD
     Route: 054
  2. RIVOTRIL [Concomitant]
     Active Substance: CLONAZEPAM
     Indication: SEIZURE
  3. LANDSEN [Concomitant]
     Active Substance: CLONAZEPAM
     Indication: SEIZURE
  4. GILENYA [Suspect]
     Active Substance: FINGOLIMOD HYDROCHLORIDE
     Indication: MULTIPLE SCLEROSIS
     Dosage: 0.5 MG, QD
     Route: 048
     Dates: start: 20170525
  5. LANDSEN [Concomitant]
     Active Substance: CLONAZEPAM
     Indication: HYPOAESTHESIA
     Dosage: 3 MG, QD
     Route: 048
  6. MAGMITT [Concomitant]
     Active Substance: MAGNESIUM OXIDE
     Indication: CONSTIPATION
     Dosage: 330 MG, TID
     Route: 048
  7. RIVOTRIL [Concomitant]
     Active Substance: CLONAZEPAM
     Indication: HYPOAESTHESIA
     Dosage: 0.5 MG, 6QD
     Route: 048

REACTIONS (1)
  - Death [Fatal]

NARRATIVE: CASE EVENT DATE: 20180113
